FAERS Safety Report 18979011 (Version 3)
Quarter: 2021Q1

REPORT INFORMATION
  Report Type: Spontaneous
  Country: ES (occurrence: ES)
  Receive Date: 20210308
  Receipt Date: 20210322
  Transmission Date: 20210420
  Serious: Yes (Death, Hospitalization, Other)
  Sender: FDA-Public Use
  Company Number: ES-AUROBINDO-AUR-APL-2021-009248

PATIENT
  Age: 94 Year
  Sex: Female
  Weight: 38 kg

DRUGS (4)
  1. QUETIAPINE AUROVITAS 25 MG FILM COATED TABLET EFG [Suspect]
     Active Substance: QUETIAPINE
     Dosage: 1 DOSAGE FORM, TWO TIMES A DAY
     Route: 048
  2. TESAVEL [Concomitant]
     Active Substance: SITAGLIPTIN PHOSPHATE
     Indication: DIABETES MELLITUS
     Dosage: 1 DOSAGE FORM, ONCE A DAY AT BREAKFAST
     Route: 065
  3. QUETIAPINE AUROVITAS 25 MG FILM COATED TABLET EFG [Suspect]
     Active Substance: QUETIAPINE
     Indication: SENILE DEMENTIA
     Dosage: 1 DOSAGE FORM
     Route: 048
  4. ENALAPRIL [Concomitant]
     Active Substance: ENALAPRIL
     Indication: BLOOD PRESSURE MEASUREMENT
     Dosage: 2 DOSAGE FORM, ONCE A DAY
     Route: 065

REACTIONS (4)
  - Cardio-respiratory arrest [Fatal]
  - Myocardial infarction [Fatal]
  - Product use in unapproved indication [Unknown]
  - Hypersomnia [Unknown]
